FAERS Safety Report 6011351-1 (Version None)
Quarter: 2008Q4

REPORT INFORMATION
  Report Type: 
  Country: None (occurrence: None)
  Receive Date: 20081218
  Receipt Date: 20081203
  Transmission Date: 20090506
  Serious: Yes (Other)
  Sender: FDA-Public Use
  Company Number: US-GENENTECH-273632

PATIENT

DRUGS (2)
  1. BEVACIZUMAB [Suspect]
     Indication: METASTATIC MALIGNANT MELANOMA
     Dosage: 15 MG/KG, Q14D
     Route: 042
     Dates: start: 20070213
  2. INTERFERON ALFA [Concomitant]
     Indication: METASTATIC MALIGNANT MELANOMA
     Dosage: 5 UNK, Q14D
     Route: 058
     Dates: start: 20070213

REACTIONS (3)
  - CONSTIPATION [None]
  - FATIGUE [None]
  - LYMPHOCYTE COUNT DECREASED [None]
